FAERS Safety Report 19318621 (Version 2)
Quarter: 2021Q3

REPORT INFORMATION
  Report Type: Report from Study
  Country: None (occurrence: US)
  Receive Date: 20210527
  Receipt Date: 20210810
  Transmission Date: 20211014
  Serious: Yes (Hospitalization)
  Sender: FDA-Public Use
  Company Number: US-ABBVIE-21P-163-3894340-00

PATIENT
  Age: 59 Year
  Sex: Male
  Weight: 79 kg

DRUGS (17)
  1. VENETOCLAX. [Suspect]
     Active Substance: VENETOCLAX
     Dosage: DAYS 15?21 CYCLE 3
     Route: 048
  2. BACTRIM [Concomitant]
     Active Substance: SULFAMETHOXAZOLE\TRIMETHOPRIM
     Indication: PRODUCT USED FOR UNKNOWN INDICATION
  3. CEFEPIME [Concomitant]
     Active Substance: CEFEPIME HYDROCHLORIDE
     Indication: PRODUCT USED FOR UNKNOWN INDICATION
  4. VENETOCLAX. [Suspect]
     Active Substance: VENETOCLAX
     Dosage: DAYS 22?28 CYCLE 3
     Route: 048
  5. IBRUTINIB [Suspect]
     Active Substance: IBRUTINIB
     Indication: CHRONIC LYMPHOCYTIC LEUKAEMIA
     Dosage: DAYS 1?28, CYCLES 1?19
     Route: 048
     Dates: start: 20200408, end: 20210505
  6. ACYCLOVIR. [Concomitant]
     Active Substance: ACYCLOVIR
     Indication: PRODUCT USED FOR UNKNOWN INDICATION
  7. OPTIRAY [Concomitant]
     Active Substance: IOVERSOL
     Indication: PRODUCT USED FOR UNKNOWN INDICATION
  8. VENETOCLAX. [Suspect]
     Active Substance: VENETOCLAX
     Indication: CHRONIC LYMPHOCYTIC LEUKAEMIA
     Dosage: DAYS 1?7 CYCLE 3
     Route: 048
     Dates: start: 20210202
  9. CEFEPIME [Concomitant]
     Active Substance: CEFEPIME HYDROCHLORIDE
     Indication: PRODUCT USED FOR UNKNOWN INDICATION
  10. LOVENOX [Concomitant]
     Active Substance: ENOXAPARIN SODIUM
     Indication: PRODUCT USED FOR UNKNOWN INDICATION
  11. LOVENOX [Concomitant]
     Active Substance: ENOXAPARIN SODIUM
     Indication: PRODUCT USED FOR UNKNOWN INDICATION
  12. OPTIRAY [Concomitant]
     Active Substance: IOVERSOL
     Indication: PRODUCT USED FOR UNKNOWN INDICATION
  13. VENETOCLAX. [Suspect]
     Active Substance: VENETOCLAX
     Dosage: DAYS 8?14 CYCLE 3
     Route: 048
  14. K?PHOS [Concomitant]
     Active Substance: POTASSIUM PHOSPHATE, MONOBASIC
     Indication: PRODUCT USED FOR UNKNOWN INDICATION
  15. VENETOCLAX. [Suspect]
     Active Substance: VENETOCLAX
     Dosage: DAYS 1?28 CYCLE 4?14
     Route: 048
     Dates: end: 20210506
  16. LOVENOX [Concomitant]
     Active Substance: ENOXAPARIN SODIUM
     Indication: PRODUCT USED FOR UNKNOWN INDICATION
  17. LOVENOX [Concomitant]
     Active Substance: ENOXAPARIN SODIUM
     Indication: PRODUCT USED FOR UNKNOWN INDICATION

REACTIONS (4)
  - Febrile neutropenia [Not Recovered/Not Resolved]
  - Neutrophil count decreased [Recovering/Resolving]
  - COVID-19 [Not Recovered/Not Resolved]
  - Cough [Not Recovered/Not Resolved]

NARRATIVE: CASE EVENT DATE: 20210429
